FAERS Safety Report 7650776-5 (Version None)
Quarter: 2011Q3

REPORT INFORMATION
  Report Type: 
  Country: None (occurrence: None)
  Receive Date: 20110802
  Receipt Date: 20110728
  Transmission Date: 20111222
  Serious: Yes (Other)
  Sender: FDA-Public Use
  Company Number: US-MERCK-1107USA03823

PATIENT
  Age: 78 Year
  Sex: Female

DRUGS (7)
  1. ALPHAGAN [Concomitant]
     Route: 065
  2. LEXAPRO [Concomitant]
     Route: 065
  3. AZELASTINE HYDROCHLORIDE [Concomitant]
     Route: 065
  4. FOSAMAX [Suspect]
     Indication: OSTEOPOROSIS
     Route: 048
     Dates: end: 20090101
  5. ALPRAZOLAM [Concomitant]
     Route: 065
  6. HYDROCHLOROTHIAZIDE AND LOSARTAN POTASSIUM [Concomitant]
     Route: 065
  7. LEVOTHYROXINE SODIUM [Concomitant]
     Route: 065

REACTIONS (2)
  - TIBIA FRACTURE [None]
  - FALL [None]
